FAERS Safety Report 13428268 (Version 4)
Quarter: 2017Q3

REPORT INFORMATION
  Report Type: Spontaneous
  Country: US (occurrence: US)
  Receive Date: 20170411
  Receipt Date: 20170710
  Transmission Date: 20171127
  Serious: Yes (Other)
  Sender: FDA-Public Use
  Company Number: US-CELGENEUS-USA-20170402883

PATIENT
  Age: 77 Year
  Sex: Female
  Weight: 57.2 kg

DRUGS (1)
  1. REVLIMID [Suspect]
     Active Substance: LENALIDOMIDE
     Indication: MYELODYSPLASTIC SYNDROME
     Dosage: 10 MILLIGRAM
     Route: 048
     Dates: start: 20170210, end: 20170703

REACTIONS (5)
  - Dysphonia [Unknown]
  - Rash pruritic [Not Recovered/Not Resolved]
  - Haemoglobin decreased [Unknown]
  - Oropharyngeal pain [Unknown]
  - Rash erythematous [Unknown]

NARRATIVE: CASE EVENT DATE: 2017
